FAERS Safety Report 6937059-3 (Version None)
Quarter: 2010Q3

REPORT INFORMATION
  Report Type: 
  Country: None (occurrence: None)
  Receive Date: 20100823
  Receipt Date: 20100812
  Transmission Date: 20110219
  Serious: Yes (Other)
  Sender: FDA-Public Use
  Company Number: PHHY2010BR53545

PATIENT
  Sex: Male

DRUGS (1)
  1. TRILEPTAL [Suspect]
     Route: 048

REACTIONS (2)
  - AGITATION [None]
  - TIC [None]
